FAERS Safety Report 6030787-6 (Version None)
Quarter: 2009Q1

REPORT INFORMATION
  Report Type: 
  Country: None (occurrence: None)
  Receive Date: 20090107
  Receipt Date: 20090106
  Transmission Date: 20090719
  Serious: Yes (Death, Other)
  Sender: FDA-Public Use
  Company Number: PHHY2009BR00545

PATIENT
  Age: 94 Year
  Sex: Male

DRUGS (2)
  1. EXELON [Suspect]
     Indication: DEMENTIA
     Dosage: 18MG/10CM(2)
     Route: 062
     Dates: start: 20080101
  2. EXELON [Suspect]
     Indication: NEURODEGENERATIVE DISORDER

REACTIONS (4)
  - CARDIAC ARREST [None]
  - CARDIO-RESPIRATORY ARREST [None]
  - RESPIRATORY TRACT INFECTION [None]
  - SPUTUM RETENTION [None]
